FAERS Safety Report 21748219 (Version 2)
Quarter: 2022Q4

REPORT INFORMATION
  Report Type: Report from Study
  Country: US (occurrence: US)
  Receive Date: 20221219
  Receipt Date: 20221228
  Transmission Date: 20230113
  Serious: Yes (Hospitalization, Other)
  Sender: FDA-Public Use
  Company Number: US-ASTELLAS-2022US044402

PATIENT
  Age: 75 Year
  Sex: Male

DRUGS (13)
  1. ENZALUTAMIDE [Suspect]
     Active Substance: ENZALUTAMIDE
     Indication: Prostate cancer
     Dosage: 160 MG, ONCE DAILY (EVERY NIGHT)
     Route: 048
     Dates: start: 20211001
  2. CLINDAMYCIN HYDROCHLORIDE [Suspect]
     Active Substance: CLINDAMYCIN HYDROCHLORIDE
     Indication: Hangnail
     Route: 048
     Dates: start: 20221209
  3. CLINDAMYCIN HYDROCHLORIDE [Suspect]
     Active Substance: CLINDAMYCIN HYDROCHLORIDE
     Indication: Nail infection
  4. TYLENOL [Suspect]
     Active Substance: ACETAMINOPHEN
     Indication: Onychalgia
     Dosage: 1 DF, TOTAL DOSE (THAT MORNING)
     Route: 048
     Dates: start: 20221209, end: 20221209
  5. ELIGARD [Concomitant]
     Active Substance: LEUPROLIDE ACETATE
     Indication: Prostate cancer
     Dosage: UNK UNK, OTHER (ONCE EVERY 6 MONTHS)
     Route: 065
  6. COMBIGAN [Concomitant]
     Active Substance: BRIMONIDINE TARTRATE\TIMOLOL MALEATE
     Indication: Intraocular pressure increased
     Dosage: ONE DROP IN THE LEFT EYE, ONCE DAILY
     Route: 047
     Dates: start: 2021
  7. PREDNISOLONE ACETATE [Concomitant]
     Active Substance: PREDNISOLONE ACETATE
     Indication: Corneal transplant
     Dosage: ONE DROP IN THE LEFT EYE, 4 TIMES DAILY
     Route: 047
     Dates: start: 2012
  8. LATANOPROST [Concomitant]
     Active Substance: LATANOPROST
     Indication: Intraocular pressure increased
     Dosage: ONE DROP IN EACH EYE, ONCE DAILY
     Route: 047
  9. ROSUVASTATIN CALCIUM [Concomitant]
     Active Substance: ROSUVASTATIN CALCIUM
     Indication: Blood cholesterol increased
     Route: 048
     Dates: start: 2017
  10. AMLODIPINE BESYLATE [Concomitant]
     Active Substance: AMLODIPINE BESYLATE
     Indication: Hypertension
     Route: 048
     Dates: start: 2020
  11. VALSARTAN [Concomitant]
     Active Substance: VALSARTAN
     Indication: Hypertension
     Route: 048
     Dates: start: 2017
  12. IMIPRAMINE [Concomitant]
     Active Substance: IMIPRAMINE
     Indication: Urinary incontinence
     Route: 048
  13. NEXIUM [Concomitant]
     Active Substance: ESOMEPRAZOLE MAGNESIUM
     Indication: Gastrooesophageal reflux disease
     Route: 048

REACTIONS (10)
  - Malaise [Recovered/Resolved]
  - Nausea [Recovered/Resolved]
  - Syncope [Recovered/Resolved]
  - Asthenia [Recovered/Resolved]
  - Hypothyroidism [Not Recovered/Not Resolved]
  - Hypotension [Recovered/Resolved]
  - Fall [Recovered/Resolved]
  - Hangnail [Recovering/Resolving]
  - Paronychia [Recovering/Resolving]
  - Onychalgia [Recovered/Resolved]

NARRATIVE: CASE EVENT DATE: 20221207
